FAERS Safety Report 6973091-1 (Version None)
Quarter: 2010Q3

REPORT INFORMATION
  Report Type: 
  Country: None (occurrence: None)
  Receive Date: 20100909
  Receipt Date: 20100907
  Transmission Date: 20110219
  Serious: Yes (Other)
  Sender: FDA-Public Use
  Company Number: US-BRISTOL-MYERS SQUIBB COMPANY-15227556

PATIENT
  Age: 62 Year
  Sex: Male

DRUGS (4)
  1. ERBITUX [Suspect]
     Indication: OESOPHAGEAL CARCINOMA
     Dosage: LOADING DOSE-684 MG ON DAY 1,428 MG ON DAYS 8,15,22,29,36.
     Dates: start: 20100119
  2. CISPLATIN [Suspect]
     Indication: OESOPHAGEAL CARCINOMA
     Dosage: SCHEDULED TO RECEIVE DOSE ON DAYS 1,8,15,22,29,36.
     Dates: start: 20100119
  3. PACLITAXEL [Suspect]
     Indication: OESOPHAGEAL CARCINOMA
     Dosage: SCHEDULED TO RECEIVE DOSE ON DAYS 1,8,15,22,29,36.
     Dates: start: 20100119
  4. RADIATION THERAPY [Suspect]
     Indication: OESOPHAGEAL CARCINOMA

REACTIONS (2)
  - RASH [None]
  - SKIN EXFOLIATION [None]
